FAERS Safety Report 4838393-3 (Version None)
Quarter: 2005Q4

REPORT INFORMATION
  Report Type: 
  Country: None (occurrence: None)
  Receive Date: 20051123
  Receipt Date: 20051114
  Transmission Date: 20060501
  Serious: Yes (Disabling, Other)
  Sender: FDA-Public Use
  Company Number: 2005156621

PATIENT
  Age: 43 Year
  Sex: Female
  Weight: 56.6996 kg

DRUGS (7)
  1. PROCARDIA [Suspect]
     Indication: HYPERTENSION
     Dosage: 90 MG (90 MG, DAILY INTERVAL: EVERY DAY), ORAL
     Route: 048
     Dates: start: 19890101, end: 19950101
  2. FENTANYL [Concomitant]
  3. PLAVIX [Concomitant]
  4. VERAPAMIL [Concomitant]
  5. FOSAMAX [Concomitant]
  6. PAMELOR [Concomitant]
  7. LASIX [Concomitant]

REACTIONS (5)
  - DEPRESSION [None]
  - FIBROMYALGIA [None]
  - GASTRIC BYPASS [None]
  - NERVE INJURY [None]
  - OSTEOARTHRITIS [None]
